FAERS Safety Report 5285690-6 (Version None)
Quarter: 2007Q1

REPORT INFORMATION
  Report Type: 
  Country: None (occurrence: None)
  Receive Date: 20070126
  Receipt Date: 20061027
  Transmission Date: 20070707
  Serious: No
  Sender: FDA-Public Use
  Company Number: 2006-BP-11597BP

PATIENT
  Sex: Male

DRUGS (9)
  1. APTIVUS [Suspect]
     Indication: HIV INFECTION
     Dosage: SEE TEXT (SEE TEXT,TPV/R 250/100 MG 2 CAPSULES BID),PO
     Route: 048
     Dates: start: 20050801, end: 20060901
  2. PRAVACHOL [Concomitant]
  3. FUZEON [Concomitant]
  4. ASPIRIN [Concomitant]
  5. PLAVIX [Concomitant]
  6. LISINOPRIL [Concomitant]
  7. SPIRIVA [Concomitant]
  8. ALBUTEROL [Concomitant]
  9. TRUVADA [Concomitant]

REACTIONS (1)
  - LIVER FUNCTION TEST ABNORMAL [None]
